FAERS Safety Report 7055987-8 (Version None)
Quarter: 2010Q4

REPORT INFORMATION
  Report Type: 
  Country: None (occurrence: None)
  Receive Date: 20101021
  Receipt Date: 20101018
  Transmission Date: 20110411
  Serious: Yes (Other)
  Sender: FDA-Public Use
  Company Number: A0887392A

PATIENT
  Age: 74 Year
  Sex: Female

DRUGS (4)
  1. ADVAIR DISKUS 100/50 [Suspect]
     Indication: ASTHMA
     Dosage: 1PUFF TWICE PER DAY
     Route: 055
     Dates: start: 20070101, end: 20101011
  2. SPIRIVA [Suspect]
     Route: 055
  3. ALBUTEROL [Concomitant]
  4. IBUPROFEN [Concomitant]

REACTIONS (6)
  - CANDIDIASIS [None]
  - DRY MOUTH [None]
  - DYSPHONIA [None]
  - DYSPNOEA [None]
  - MUSCLE SPASMS [None]
  - PNEUMONIA [None]
